FAERS Safety Report 14840120 (Version 1)
Quarter: 2018Q2

REPORT INFORMATION
  Report Type: Report from Study
  Country: None (occurrence: AU)
  Receive Date: 20180503
  Receipt Date: 20180503
  Transmission Date: 20180711
  Serious: Yes (Other)
  Sender: FDA-Public Use
  Company Number: AU-ABBVIE-18K-008-2337867-00

PATIENT
  Sex: Female

DRUGS (2)
  1. HUMIRA [Suspect]
     Active Substance: ADALIMUMAB
     Indication: CROHN^S DISEASE
     Route: 058
  2. STELARA [Suspect]
     Active Substance: USTEKINUMAB
     Indication: CROHN^S DISEASE
     Route: 065

REACTIONS (10)
  - Drug intolerance [Unknown]
  - Fatigue [Recovering/Resolving]
  - Therapeutic response shortened [Unknown]
  - Drug ineffective [Unknown]
  - Muscle spasms [Unknown]
  - Gastrointestinal stenosis [Unknown]
  - Injection site pain [Unknown]
  - Diarrhoea [Recovering/Resolving]
  - Procedural pain [Recovering/Resolving]
  - Drug effect delayed [Unknown]
